FAERS Safety Report 4661702-5 (Version None)
Quarter: 2005Q2

REPORT INFORMATION
  Report Type: 
  Country: None (occurrence: None)
  Receive Date: 20050512
  Receipt Date: 20050512
  Transmission Date: 20051028
  Serious: No
  Sender: FDA-Public Use
  Company Number: None

PATIENT
  Sex: Female
  Weight: 60 kg

DRUGS (3)
  1. CISPLATIN [Suspect]
     Dosage: 15 MG/M2/DAY  OVER 1 HOUR ON DAY 1-5
     Dates: start: 20050419
  2. FLUOROURACIL [Suspect]
     Dosage: 300 MG/M2 /DAY CONTINUOUS INFUSION OVER 96 HOURS M-F X 5 WEEKS
     Route: 042
  3. RADIOTHERAPY [Suspect]
     Dosage: 1.8 GY/FX, 5 DYS /WEEK, M-F

REACTIONS (3)
  - DEHYDRATION [None]
  - OESOPHAGITIS [None]
  - VOMITING [None]
